FAERS Safety Report 9687986 (Version 1)
Quarter: 2013Q4

REPORT INFORMATION
  Report Type: Spontaneous
  Country: US (occurrence: US)
  Receive Date: 20131114
  Receipt Date: 20131114
  Transmission Date: 20140711
  Serious: Yes (Other)
  Sender: FDA-Public Use
  Company Number: PHEH2013US023766

PATIENT
  Sex: Male

DRUGS (8)
  1. DIOVAN HCT [Suspect]
     Dosage: 1 DF ((320 MG VALS AND 25 MG HYDR), QD
     Dates: start: 2002
  2. LANTUS [Concomitant]
  3. HUMALOG [Concomitant]
  4. LIPITOR [Concomitant]
     Dosage: 40 MG, QD
  5. TRICOR [Concomitant]
     Dosage: QD
  6. CARDIZEM [Concomitant]
     Dosage: 300 MG, QD
  7. GLUCOVANCE [Concomitant]
     Dosage: 1 DF (500/5 MG), QID
  8. MOBIC [Concomitant]
     Dosage: QD

REACTIONS (3)
  - Diabetes mellitus [Unknown]
  - Blood cholesterol increased [Unknown]
  - Hypertension [Unknown]
